FAERS Safety Report 9790154 (Version 1)
Quarter: 2013Q4

REPORT INFORMATION
  Report Type: Spontaneous
  Country: US (occurrence: US)
  Receive Date: 20131231
  Receipt Date: 20131231
  Transmission Date: 20140711
  Serious: No
  Sender: FDA-Public Use
  Company Number: US-B.I. PHARMACEUTICALS,INC./RIDGEFIELD-2013-BI-43169BP

PATIENT
  Age: 73 Year
  Sex: Male
  Weight: 106 kg

DRUGS (1)
  1. SPIRIVA [Suspect]
     Indication: PNEUMONIA
     Dosage: 36 MCG
     Route: 055
     Dates: start: 20131218

REACTIONS (2)
  - Off label use [Unknown]
  - Drug prescribing error [Not Recovered/Not Resolved]
